FAERS Safety Report 22628496 (Version 1)
Quarter: 2023Q2

REPORT INFORMATION
  Report Type: Report from Study
  Country: US (occurrence: US)
  Receive Date: 20230622
  Receipt Date: 20230622
  Transmission Date: 20230722
  Serious: Yes (Other)
  Sender: FDA-Public Use
  Company Number: US-GILEAD-2023-0632268

PATIENT
  Sex: Female

DRUGS (1)
  1. AZTREONAM LYSINE [Suspect]
     Active Substance: AZTREONAM LYSINE
     Indication: Cystic fibrosis
     Dosage: INHALE 1 VIAL (75MG) VIA ALTERA NEBULIZER THREE TIMES A DAY FOR 28 DAYS ON AND 28 DAYS OFF
     Route: 055

REACTIONS (4)
  - Multiple sclerosis relapse [Unknown]
  - Precancerous skin lesion [Unknown]
  - Abnormal weight gain [Not Recovered/Not Resolved]
  - Anxiety [Not Recovered/Not Resolved]
